FAERS Safety Report 6284335-6 (Version None)
Quarter: 2009Q3

REPORT INFORMATION
  Report Type: 
  Country: None (occurrence: None)
  Receive Date: 20090727
  Receipt Date: 20090717
  Transmission Date: 20100115
  Serious: Yes (Death, Hospitalization, Other)
  Sender: FDA-Public Use
  Company Number: US-AMGEN-KDL356342

PATIENT
  Sex: Male

DRUGS (6)
  1. PROCRIT [Suspect]
     Indication: RENAL FAILURE CHRONIC
     Dates: start: 20030201, end: 20040101
  2. ARANESP [Suspect]
     Indication: DRUG USE FOR UNKNOWN INDICATION
  3. PLAVIX [Concomitant]
     Dates: end: 20040701
  4. METOPROLOL SUCCINATE [Concomitant]
  5. BLOOD CELLS, PACKED HUMAN [Concomitant]
  6. UNSPECIFIED ANTIDIABETIC AGENT [Concomitant]
     Route: 048

REACTIONS (13)
  - ASTHENIA [None]
  - BLOOD COUNT ABNORMAL [None]
  - CARDIAC DISORDER [None]
  - CEREBROVASCULAR ACCIDENT [None]
  - DEATH [None]
  - GAIT DISTURBANCE [None]
  - HAEMOGLOBIN DECREASED [None]
  - HEART RATE INCREASED [None]
  - HOSPITALISATION [None]
  - PLATELET COUNT DECREASED [None]
  - RENAL DISORDER [None]
  - VOMITING [None]
  - WEIGHT DECREASED [None]
